FAERS Safety Report 9583195 (Version 1)
Quarter: 2013Q4

REPORT INFORMATION
  Report Type: Spontaneous
  Country: US (occurrence: US)
  Receive Date: 20131002
  Receipt Date: 20131002
  Transmission Date: 20140711
  Serious: No
  Sender: FDA-Public Use
  Company Number: US-AMGEN-USASP2013045673

PATIENT
  Age: 56 Year
  Sex: Female
  Weight: 108.84 kg

DRUGS (8)
  1. ENBREL [Suspect]
     Indication: PRODUCT USED FOR UNKNOWN INDICATION
     Dosage: 50 MG, QWK
     Route: 058
  2. METHOTREXATE [Concomitant]
     Dosage: 2.5 MG, UNK
  3. METOPROLOL [Concomitant]
     Dosage: 1 MG/ML, UNK
  4. TRAMADOL HCL [Concomitant]
     Dosage: 50 MG, UNK
  5. ETODOLAC [Concomitant]
     Dosage: 400 MG, UNK
  6. PAROXETINE [Concomitant]
     Dosage: 40 MG, UNK
  7. LAMOTRIGINE [Concomitant]
     Dosage: 150 MG, UNK
  8. FOLIC ACID [Concomitant]
     Dosage: UNK

REACTIONS (2)
  - Burning sensation [Unknown]
  - Local swelling [Unknown]
